FAERS Safety Report 5417011-X (Version None)
Quarter: 2007Q3

REPORT INFORMATION
  Report Type: 
  Country: None (occurrence: None)
  Receive Date: 20070718
  Receipt Date: 20060711
  Transmission Date: 20080115
  Serious: Yes (Other)
  Sender: FDA-Public Use
  Company Number: 2006060726

PATIENT
  Age: 60 Year
  Sex: Male
  Weight: 127.0072 kg

DRUGS (3)
  1. CELEBREX [Suspect]
     Indication: INFLAMMATION
     Dosage: 200 MG (200 MG,1 IN 1 D)
     Dates: start: 19991015, end: 20020923
  2. CELEBREX [Suspect]
     Indication: OSTEOARTHRITIS
     Dosage: 200 MG (200 MG,1 IN 1 D)
     Dates: start: 19991015, end: 20020923
  3. CELEBREX [Suspect]
     Indication: PAIN
     Dosage: 200 MG (200 MG,1 IN 1 D)
     Dates: start: 19991015, end: 20020923

REACTIONS (2)
  - MYOCARDIAL INFARCTION [None]
  - PULMONARY EMBOLISM [None]
